FAERS Safety Report 25362175 (Version 2)
Quarter: 2025Q2

REPORT INFORMATION
  Report Type: Report from Study
  Country: US (occurrence: US)
  Receive Date: 20250527
  Receipt Date: 20250616
  Transmission Date: 20250716
  Serious: Yes (Other)
  Sender: MYLAN
  Company Number: US-MYLANLABS-2025M1043090

PATIENT
  Age: 22 Year
  Sex: Female

DRUGS (16)
  1. AMNESTEEM [Suspect]
     Active Substance: ISOTRETINOIN
     Indication: Product used for unknown indication
     Dosage: UNK, BID (TWICE A DAY)
     Dates: start: 20241202, end: 20250516
  2. AMNESTEEM [Suspect]
     Active Substance: ISOTRETINOIN
     Dosage: UNK, BID (TWICE A DAY)
     Route: 065
     Dates: start: 20241202, end: 20250516
  3. AMNESTEEM [Suspect]
     Active Substance: ISOTRETINOIN
     Dosage: UNK, BID (TWICE A DAY)
     Route: 065
     Dates: start: 20241202, end: 20250516
  4. AMNESTEEM [Suspect]
     Active Substance: ISOTRETINOIN
     Dosage: UNK, BID (TWICE A DAY)
     Dates: start: 20241202, end: 20250516
  5. ISOTRETINOIN [Suspect]
     Active Substance: ISOTRETINOIN
     Indication: Product used for unknown indication
  6. ISOTRETINOIN [Suspect]
     Active Substance: ISOTRETINOIN
     Route: 065
  7. ISOTRETINOIN [Suspect]
     Active Substance: ISOTRETINOIN
     Route: 065
  8. ISOTRETINOIN [Suspect]
     Active Substance: ISOTRETINOIN
  9. CLARAVIS [Suspect]
     Active Substance: ISOTRETINOIN
     Indication: Product used for unknown indication
  10. CLARAVIS [Suspect]
     Active Substance: ISOTRETINOIN
     Route: 065
  11. CLARAVIS [Suspect]
     Active Substance: ISOTRETINOIN
     Route: 065
  12. CLARAVIS [Suspect]
     Active Substance: ISOTRETINOIN
  13. MYORISAN [Suspect]
     Active Substance: ISOTRETINOIN
     Indication: Product used for unknown indication
  14. MYORISAN [Suspect]
     Active Substance: ISOTRETINOIN
     Route: 065
  15. MYORISAN [Suspect]
     Active Substance: ISOTRETINOIN
     Route: 065
  16. MYORISAN [Suspect]
     Active Substance: ISOTRETINOIN

REACTIONS (2)
  - Maternal exposure during pregnancy [Recovered/Resolved]
  - Abortion induced [Recovered/Resolved]

NARRATIVE: CASE EVENT DATE: 20250430
